FAERS Safety Report 13070411 (Version 1)
Quarter: 2016Q4

REPORT INFORMATION
  Report Type: Spontaneous
  Country: US (occurrence: US)
  Receive Date: 20161229
  Receipt Date: 20161229
  Transmission Date: 20170207
  Serious: No
  Sender: FDA-Public Use
  Company Number: US-ASTRAZENECA-2016SF34491

PATIENT
  Age: 74 Year
  Sex: Male
  Weight: 92.1 kg

DRUGS (1)
  1. OMEPRAZOLE. [Suspect]
     Active Substance: OMEPRAZOLE
     Dosage: GENERIC (20MG DAILY)
     Route: 065
     Dates: start: 2014, end: 2016

REACTIONS (1)
  - Blood creatine increased [Unknown]

NARRATIVE: CASE EVENT DATE: 2016
